FAERS Safety Report 15686248 (Version 2)
Quarter: 2019Q4

REPORT INFORMATION
  Report Type: Spontaneous
  Country: MY (occurrence: MY)
  Receive Date: 20181204
  Receipt Date: 20191212
  Transmission Date: 20200122
  Serious: Yes (Other)
  Sender: FDA-Public Use
  Company Number: MY-BAYER-2018-218576

PATIENT
  Age: 63 Year
  Sex: Female

DRUGS (2)
  1. NEXAVAR [Suspect]
     Active Substance: SORAFENIB
     Indication: HEPATOCELLULAR CARCINOMA
     Dosage: 400 MG, QD
     Route: 048
     Dates: start: 201011
  2. NEXAVAR [Suspect]
     Active Substance: SORAFENIB
     Indication: HEPATOCELLULAR CARCINOMA
     Dosage: 400 MG
     Dates: end: 201501

REACTIONS (16)
  - Pleural effusion [Recovered/Resolved]
  - Portal vein thrombosis [Unknown]
  - Hepatocellular carcinoma [Unknown]
  - Pyrexia [Unknown]
  - Metastases to lung [None]
  - Oedema peripheral [Unknown]
  - Varicose vein [Unknown]
  - Dyspnoea [Unknown]
  - Lethargy [Unknown]
  - Ascites [Recovered/Resolved]
  - Alpha 1 foetoprotein increased [Unknown]
  - Palmar-plantar erythrodysaesthesia syndrome [Unknown]
  - Diarrhoea [Recovering/Resolving]
  - Portal hypertension [Unknown]
  - Weight decreased [Unknown]
  - Malaise [Unknown]
